FAERS Safety Report 17987324 (Version 1)
Quarter: 2020Q3

REPORT INFORMATION
  Report Type: Spontaneous
  Country: NL (occurrence: NL)
  Receive Date: 20200707
  Receipt Date: 20200707
  Transmission Date: 20201103
  Serious: Yes (Hospitalization)
  Sender: FDA-Public Use
  Company Number: NL-TEVA-2020-NL-1796212

PATIENT
  Age: 46 Year
  Sex: Male
  Weight: 89 kg

DRUGS (7)
  1. ROSUVASTATINE [Concomitant]
     Active Substance: ROSUVASTATIN
     Dosage: 20 MG,  THERAPY START DATE : ASKU, THERAPY END DATE : ASKU
  2. ESOMEPRAZOLE. [Suspect]
     Active Substance: ESOMEPRAZOLE MAGNESIUM
     Indication: DIAPHRAGMATIC HERNIA
     Dosage: 40MG, 2D1
     Dates: start: 2013, end: 20200610
  3. ACETYLSALICYLZUUR [Concomitant]
     Active Substance: ASPIRIN
     Dosage: 80 MG,  THERAPY START DATE : ASKU, THERAPY END DATE : ASKU
  4. METOPROLOL. [Concomitant]
     Active Substance: METOPROLOL
     Dosage: 100 MG
  5. METFORMINE [Concomitant]
     Active Substance: METFORMIN HYDROCHLORIDE
     Dosage: 500 MG,  THERAPY START DATE : ASKU, THERAPY END DATE : ASKU
  6. LINEZOLID. [Suspect]
     Active Substance: LINEZOLID
     Indication: MEDIASTINITIS
     Dosage: 600MG, 2D1, THERAPY END DATE : ASKU
     Dates: start: 20200603
  7. TELMISARTAN. [Concomitant]
     Active Substance: TELMISARTAN
     Dosage: 40 MG,  THERAPY START DATE : ASKU, THERAPY END DATE : ASKU

REACTIONS (3)
  - Hypomagnesaemia [Recovering/Resolving]
  - Hypokalaemia [Recovering/Resolving]
  - Hypocalcaemia [Recovering/Resolving]

NARRATIVE: CASE EVENT DATE: 20200610
